FAERS Safety Report 6115227-0 (Version None)
Quarter: 2009Q1

REPORT INFORMATION
  Report Type: 
  Country: None (occurrence: None)
  Receive Date: 20090313
  Receipt Date: 20090304
  Transmission Date: 20090719
  Serious: Yes (Other)
  Sender: FDA-Public Use
  Company Number: US-MERCK-0903USA01592

PATIENT
  Age: 74 Year
  Sex: Female

DRUGS (5)
  1. ZOCOR [Suspect]
     Route: 048
  2. PREDNISONE [Concomitant]
     Route: 065
  3. CYCLOSPORINE [Suspect]
     Route: 048
  4. THYROID [Concomitant]
     Route: 065
  5. LANSOPRAZOLE [Concomitant]
     Route: 065

REACTIONS (7)
  - ASTHENIA [None]
  - BLOOD CREATINE PHOSPHOKINASE INCREASED [None]
  - DYSPHAGIA [None]
  - DYSPNOEA [None]
  - FACIAL PALSY [None]
  - MUSCULAR WEAKNESS [None]
  - MYALGIA [None]
